FAERS Safety Report 15007107 (Version 1)
Quarter: 2018Q2

REPORT INFORMATION
  Report Type: Spontaneous
  Country: ES (occurrence: ES)
  Receive Date: 20180613
  Receipt Date: 20180613
  Transmission Date: 20180711
  Serious: Yes (Other)
  Sender: FDA-Public Use
  Company Number: ES-PFIZER INC-2018236025

PATIENT
  Age: 66 Year
  Sex: Female

DRUGS (1)
  1. PREVENCOR [Suspect]
     Active Substance: ATORVASTATIN CALCIUM
     Indication: CHRONIC KIDNEY DISEASE
     Dosage: 40 MG, 1X/DAY (0-0-1)
     Route: 048
     Dates: start: 20180226, end: 20180504

REACTIONS (5)
  - Myalgia [Unknown]
  - Asthenia [Unknown]
  - Musculoskeletal discomfort [Unknown]
  - Sleep disorder [Unknown]
  - Product use in unapproved indication [Unknown]

NARRATIVE: CASE EVENT DATE: 20180226
